FAERS Safety Report 25274836 (Version 2)
Quarter: 2025Q2

REPORT INFORMATION
  Report Type: Spontaneous
  Country: US (occurrence: US)
  Receive Date: 20250506
  Receipt Date: 20250528
  Transmission Date: 20250716
  Serious: Yes (Death, Other)
  Sender: JOHNSON AND JOHNSON
  Company Number: US-JNJFOC-20250441738

PATIENT
  Age: 73 Year
  Sex: Male

DRUGS (2)
  1. TECVAYLI [Suspect]
     Active Substance: TECLISTAMAB-CQYV
     Indication: Plasma cell myeloma
     Route: 058
  2. TECVAYLI [Suspect]
     Active Substance: TECLISTAMAB-CQYV
     Route: 058

REACTIONS (4)
  - Respiratory failure [Fatal]
  - Sepsis [Fatal]
  - Immune effector cell-associated neurotoxicity syndrome [Unknown]
  - Listeriosis [Unknown]
